FAERS Safety Report 4264776-9 (Version None)
Quarter: 2004Q1

REPORT INFORMATION
  Report Type: 
  Country: None (occurrence: None)
  Receive Date: 20040102
  Receipt Date: 20031219
  Transmission Date: 20041129
  Serious: Yes (Hospitalization, Other)
  Sender: FDA-Public Use
  Company Number: 2003120958

PATIENT
  Age: 75 Year
  Sex: Female
  Weight: 50 kg

DRUGS (11)
  1. VFEND [Suspect]
     Indication: ILL-DEFINED DISORDER
     Dates: start: 20030718
  2. PARACETAMOL (PARACETAMOL) [Suspect]
     Indication: ILL-DEFINED DISORDER
     Dosage: ORAL
     Route: 048
  3. RISEDRONATE SODIUM (RISEDRONATE SODIUM) [Suspect]
     Indication: ILL-DEFINED DISORDER
     Dosage: ORAL
     Route: 048
  4. OMEPRAZOLE [Suspect]
     Indication: ILL-DEFINED DISORDER
     Dosage: 20 MG (DAILY), ORAL
     Route: 048
  5. FOLIC ACID [Suspect]
     Indication: ILL-DEFINED DISORDER
     Dosage: ORAL
     Route: 048
  6. LEKOVIT CA (COLECALCIFEROL, CALCIUM CARBONATE) [Suspect]
     Indication: ILL-DEFINED DISORDER
     Dosage: ORAL
     Route: 048
  7. MACROGOL (MACROGOL) [Concomitant]
  8. DOMPERIDONE (DOMPERIDONE) [Concomitant]
  9. TRAMADOL HCL [Concomitant]
  10. HEPARIN-FRACTION, SODIUM SALT (HEPARIN-FRACTION, SODIUM SALT) [Concomitant]
  11. LACTULOSE [Concomitant]

REACTIONS (7)
  - CONVULSION [None]
  - EPILEPSY [None]
  - HEPATIC FAILURE [None]
  - HEPATITIS CHOLESTATIC [None]
  - RHONCHI [None]
  - SPINAL CORD COMPRESSION [None]
  - STAPHYLOCOCCAL SEPSIS [None]
